FAERS Safety Report 7055908-8 (Version None)
Quarter: 2010Q4

REPORT INFORMATION
  Report Type: 
  Country: None (occurrence: None)
  Receive Date: 20101021
  Receipt Date: 20101013
  Transmission Date: 20110411
  Serious: Yes (Hospitalization, Congenital Anomaly)
  Sender: FDA-Public Use
  Company Number: A0681066A

PATIENT
  Sex: Female

DRUGS (4)
  1. PAXIL [Suspect]
     Indication: ANXIETY
     Dosage: 20MG PER DAY
     Dates: start: 19950701
  2. PAROXETINE HCL [Suspect]
     Indication: ANXIETY
     Dates: start: 19950701
  3. PRENATAL VITAMINS [Concomitant]
     Dates: start: 19960101
  4. ACETAMINOPHEN [Concomitant]

REACTIONS (10)
  - AORTIC STENOSIS [None]
  - BRONCHIAL HYPERREACTIVITY [None]
  - CONGENITAL CARDIOVASCULAR ANOMALY [None]
  - DRUG EXPOSURE DURING PREGNANCY [None]
  - FAILURE TO THRIVE [None]
  - FALLOT'S TETRALOGY [None]
  - HYPOTHYROIDISM [None]
  - PATENT DUCTUS ARTERIOSUS [None]
  - PULMONARY VALVE STENOSIS [None]
  - VENTRICULAR SEPTAL DEFECT [None]
